FAERS Safety Report 6262282-3 (Version None)
Quarter: 2009Q3

REPORT INFORMATION
  Report Type: 
  Country: None (occurrence: None)
  Receive Date: 20090709
  Receipt Date: 20090629
  Transmission Date: 20100115
  Serious: Yes (Other)
  Sender: FDA-Public Use
  Company Number: DE-PFIZER INC-2009217416

PATIENT
  Age: 53 Year

DRUGS (3)
  1. TOVIAZ [Suspect]
     Indication: URGE INCONTINENCE
     Dosage: 8 MG, DAILY
     Route: 048
     Dates: start: 20090227, end: 20090507
  2. VALPROATE SODIUM [Suspect]
     Indication: EPILEPSY
     Dosage: 500 MG, 7X DAILY
     Route: 048
  3. DIAZEPAM [Concomitant]
     Dosage: 5 MG, AS NEEDED
     Route: 048

REACTIONS (1)
  - CONVULSION [None]
